FAERS Safety Report 4601237-9 (Version None)
Quarter: 2005Q1

REPORT INFORMATION
  Report Type: 
  Country: None (occurrence: None)
  Receive Date: 20050304
  Receipt Date: 20050225
  Transmission Date: 20050727
  Serious: Yes (Other)
  Sender: FDA-Public Use
  Company Number: 2005-02-1777

PATIENT

DRUGS (1)
  1. NASONEX [Suspect]
     Dosage: UNKNOWN NASAL SPRAY
     Route: 045

REACTIONS (1)
  - ANOSMIA [None]
